FAERS Safety Report 7024835-4 (Version None)
Quarter: 2010Q4

REPORT INFORMATION
  Report Type: 
  Country: None (occurrence: None)
  Receive Date: 20101001
  Receipt Date: 20100922
  Transmission Date: 20110411
  Serious: Yes (Other)
  Sender: FDA-Public Use
  Company Number: JP-JNJFOC-20100908217

PATIENT
  Age: 14 Year
  Sex: Male

DRUGS (5)
  1. TOPIRAMATE [Suspect]
     Indication: EPILEPSY
     Route: 065
  2. ZONISAMIDE [Suspect]
     Indication: EPILEPSY
     Route: 065
  3. CARBAMAZEPINE [Suspect]
     Indication: EPILEPSY
     Route: 065
  4. CLOBAZAM [Suspect]
     Indication: EPILEPSY
     Route: 065
  5. VALPROIC ACID [Suspect]
     Indication: EPILEPSY
     Route: 065

REACTIONS (4)
  - CONTUSION [None]
  - EPILEPSY [None]
  - RESPIRATORY ARREST [None]
  - RESPIRATORY DISORDER [None]
